FAERS Safety Report 17746656 (Version 28)
Quarter: 2022Q3

REPORT INFORMATION
  Report Type: Report from Study
  Country: CA (occurrence: CA)
  Receive Date: 20200505
  Receipt Date: 20220823
  Transmission Date: 20221026
  Serious: Yes (Life-Threatening, Hospitalization, Other)
  Sender: FDA-Public Use
  Company Number: NVSC2019CA024169

PATIENT
  Age: 81 Year
  Sex: Female

DRUGS (13)
  1. SANDOSTATIN LAR DEPOT [Suspect]
     Active Substance: OCTREOTIDE ACETATE
     Indication: Neuroendocrine tumour
     Dosage: 20 MG, QMO (Q4W)
     Route: 030
     Dates: start: 20110726, end: 20220106
  2. SANDOSTATIN LAR DEPOT [Suspect]
     Active Substance: OCTREOTIDE ACETATE
     Dosage: 20 MG, QMO
     Route: 030
     Dates: start: 20200601
  3. SANDOSTATIN LAR DEPOT [Suspect]
     Active Substance: OCTREOTIDE ACETATE
     Dosage: 20 MG, Q3W
     Route: 030
  4. SANDOSTATIN LAR DEPOT [Suspect]
     Active Substance: OCTREOTIDE ACETATE
     Dosage: 20 MG, Q4W
     Route: 030
     Dates: end: 20220106
  5. SANDOSTATIN LAR DEPOT [Suspect]
     Active Substance: OCTREOTIDE ACETATE
     Dosage: 30 MG, Q4W
     Route: 030
  6. SANDOSTATIN LAR DEPOT [Suspect]
     Active Substance: OCTREOTIDE ACETATE
     Dosage: 20 MG, Q4W
     Route: 030
     Dates: start: 20220302
  7. ACETAMINOPHEN [Concomitant]
     Active Substance: ACETAMINOPHEN
     Indication: Neuroendocrine tumour
     Dosage: UNK
     Route: 065
  8. CALCIUM CARBONATE [Concomitant]
     Active Substance: CALCIUM CARBONATE
     Indication: Neuroendocrine tumour
     Dosage: UNK
     Route: 065
  9. VITAMIN D [Concomitant]
     Active Substance: VITAMIN D NOS
     Indication: Neuroendocrine tumour
     Dosage: UNK
     Route: 065
  10. ESCITALOPRAM [Concomitant]
     Active Substance: ESCITALOPRAM OXALATE
     Indication: Neuroendocrine tumour
     Dosage: UNK
     Route: 065
  11. GABAPENTIN [Concomitant]
     Active Substance: GABAPENTIN
     Indication: Neuroendocrine tumour
     Dosage: UNK
     Route: 065
  12. HYDROMORPHONE [Concomitant]
     Active Substance: HYDROMORPHONE
     Indication: Neuroendocrine tumour
     Dosage: UNK
     Route: 065
  13. PANTOPRAZOLE [Concomitant]
     Active Substance: PANTOPRAZOLE
     Indication: Neuroendocrine tumour
     Dosage: UNK
     Route: 065

REACTIONS (43)
  - Feeling abnormal [Unknown]
  - Fall [Unknown]
  - Rib fracture [Unknown]
  - Fracture pain [Unknown]
  - Pneumonia [Unknown]
  - Illness [Unknown]
  - Gait inability [Unknown]
  - Haematemesis [Unknown]
  - Eye haemorrhage [Unknown]
  - Diarrhoea [Unknown]
  - Blindness [Unknown]
  - Blindness unilateral [Unknown]
  - Deafness [Unknown]
  - Blood pressure increased [Unknown]
  - Malaise [Unknown]
  - Abdominal discomfort [Unknown]
  - Fear of death [Unknown]
  - Arthritis [Unknown]
  - Ill-defined disorder [Unknown]
  - Emotional distress [Unknown]
  - Lung disorder [Unknown]
  - Anxiety [Unknown]
  - Nervousness [Unknown]
  - Fear [Unknown]
  - Mental disorder [Unknown]
  - Crying [Unknown]
  - Skin injury [Unknown]
  - Localised infection [Unknown]
  - Feeding disorder [Unknown]
  - Psychiatric symptom [Unknown]
  - Contusion [Unknown]
  - Pain [Unknown]
  - Nausea [Unknown]
  - Abdominal pain [Unknown]
  - Asthenia [Unknown]
  - Vomiting [Unknown]
  - Headache [Unknown]
  - Dizziness [Unknown]
  - Fatigue [Unknown]
  - Product dose omission issue [Unknown]
  - Inappropriate schedule of product administration [Unknown]
  - Injection site pain [Unknown]
  - Product availability issue [Unknown]

NARRATIVE: CASE EVENT DATE: 20191031
